FAERS Safety Report 4339203-3 (Version None)
Quarter: 2004Q2

REPORT INFORMATION
  Report Type: 
  Country: None (occurrence: None)
  Receive Date: 20040415
  Receipt Date: 20040115
  Transmission Date: 20050107
  Serious: Yes (Hospitalization)
  Sender: FDA-Public Use
  Company Number: PHHO2004ES00879

PATIENT
  Age: 50 Year

DRUGS (7)
  1. SIMULECT [Suspect]
     Indication: LIVER TRANSPLANT
     Dosage: 20 MG, ONCE/SINGLE
     Route: 042
     Dates: start: 20020314, end: 20020314
  2. SIMULECT [Suspect]
     Dosage: 20 MG, ONCE/SINGLE
     Route: 042
     Dates: start: 20020318, end: 20020318
  3. NEORAL [Suspect]
     Indication: LIVER TRANSPLANT
     Dosage: 250 MG / DAY
     Route: 048
     Dates: start: 20020319, end: 20020404
  4. NEORAL [Suspect]
     Dosage: 600MG
     Route: 048
  5. NEORAL [Suspect]
     Dosage: 400MG
     Dates: start: 20020331
  6. NEORAL [Suspect]
     Dosage: 300MG
     Dates: start: 20020405
  7. NEORAL [Suspect]
     Dosage: 300MG
     Dates: start: 20020411

REACTIONS (15)
  - ASTHENIA [None]
  - BLOOD CULTURE POSITIVE [None]
  - COUGH [None]
  - CULTURE URINE POSITIVE [None]
  - EPILEPSY [None]
  - GLOMERULONEPHRITIS [None]
  - GRAND MAL CONVULSION [None]
  - HEADACHE [None]
  - HYPERTENSION [None]
  - NEPHROTIC SYNDROME [None]
  - PSEUDOMONAS INFECTION [None]
  - PYREXIA [None]
  - STREPTOCOCCAL INFECTION [None]
  - SUBARACHNOID HAEMORRHAGE [None]
  - VASOSPASM [None]
